FAERS Safety Report 7157077-2 (Version None)
Quarter: 2010Q4

REPORT INFORMATION
  Report Type: 
  Country: None (occurrence: None)
  Receive Date: 20101214
  Receipt Date: 20091228
  Transmission Date: 20110411
  Serious: No
  Sender: FDA-Public Use
  Company Number: US-ASTRAZENECA-2009SE33668

PATIENT
  Sex: Female
  Weight: 65.1 kg

DRUGS (4)
  1. CRESTOR [Suspect]
     Indication: DYSLIPIDAEMIA
     Route: 048
     Dates: start: 20091127, end: 20091222
  2. ATENOLOL [Concomitant]
     Indication: HYPERTENSION
     Route: 048
  3. AMLODIPINE [Concomitant]
  4. LEVOXYL [Concomitant]
     Route: 048

REACTIONS (4)
  - DEPRESSED MOOD [None]
  - DIARRHOEA [None]
  - MYALGIA [None]
  - NAUSEA [None]
